FAERS Safety Report 7780726-2 (Version None)
Quarter: 2011Q3

REPORT INFORMATION
  Report Type: 
  Country: None (occurrence: None)
  Receive Date: 20110927
  Receipt Date: 20110526
  Transmission Date: 20111222
  Serious: No
  Sender: FDA-Public Use
  Company Number: US-BRISTOL-MYERS SQUIBB COMPANY-15782055

PATIENT
  Age: 82 Year
  Sex: Female

DRUGS (8)
  1. SPIRONOLACTONE [Concomitant]
  2. AVAPRO [Suspect]
  3. METFORMIN HCL [Concomitant]
     Dosage: METFORMIN ER 500 MG
  4. SPIRIVA [Concomitant]
  5. PATADAY [Concomitant]
  6. JANUVIA [Concomitant]
  7. TORSEMIDE [Concomitant]
  8. LEVOTHYROXINE SODIUM [Concomitant]

REACTIONS (1)
  - INCORRECT DOSE ADMINISTERED [None]
